FAERS Safety Report 8146326-X (Version None)
Quarter: 2012Q1

REPORT INFORMATION
  Report Type: 
  Country: None (occurrence: None)
  Receive Date: 20120217
  Receipt Date: 20110824
  Transmission Date: 20120608
  Serious: No
  Sender: FDA-Public Use
  Company Number: US-ABBOTT-11P-163-0848832-00

PATIENT
  Sex: Female
  Weight: 122.58 kg

DRUGS (1)
  1. SIMCOR [Suspect]
     Indication: LOW DENSITY LIPOPROTEIN INCREASED
     Dates: start: 20100101

REACTIONS (2)
  - HYPOAESTHESIA [None]
  - PARAESTHESIA [None]
